FAERS Safety Report 13626770 (Version 1)
Quarter: 2017Q2

REPORT INFORMATION
  Report Type: Spontaneous
  Country: US (occurrence: US)
  Receive Date: 20170607
  Receipt Date: 20170607
  Transmission Date: 20170830
  Serious: No
  Sender: FDA-Public Use
  Company Number: US-JNJFOC-20170603558

PATIENT
  Age: 5 Year
  Sex: Male

DRUGS (6)
  1. RISPERIDONE. [Suspect]
     Active Substance: RISPERIDONE
     Indication: AFFECTIVE DISORDER
     Route: 048
     Dates: start: 20080806, end: 20090901
  2. RISPERDAL [Suspect]
     Active Substance: RISPERIDONE
     Indication: OBSESSIVE THOUGHTS
     Route: 048
     Dates: start: 20070102, end: 200808
  3. RISPERDAL [Suspect]
     Active Substance: RISPERIDONE
     Indication: HYPERSOMNIA
     Route: 048
     Dates: start: 20070102, end: 200808
  4. RISPERDAL [Suspect]
     Active Substance: RISPERIDONE
     Indication: ENURESIS
     Route: 048
     Dates: start: 20070102, end: 200808
  5. RISPERDAL [Suspect]
     Active Substance: RISPERIDONE
     Indication: AFFECTIVE DISORDER
     Route: 048
     Dates: start: 20070102, end: 200808
  6. RISPERIDONE. [Suspect]
     Active Substance: RISPERIDONE
     Indication: PRODUCT USED FOR UNKNOWN INDICATION
     Route: 048

REACTIONS (4)
  - Gynaecomastia [Unknown]
  - Emotional distress [Unknown]
  - Product use in unapproved indication [Unknown]
  - Off label use [Unknown]

NARRATIVE: CASE EVENT DATE: 20070102
